FAERS Safety Report 4806929-4 (Version None)
Quarter: 2005Q4

REPORT INFORMATION
  Report Type: 
  Country: None (occurrence: None)
  Receive Date: 20051019
  Receipt Date: 20051005
  Transmission Date: 20060501
  Serious: Yes (Other)
  Sender: FDA-Public Use
  Company Number: GXKR2005JP01756

PATIENT
  Sex: 0

DRUGS (5)
  1. RIFAMPICIN [Suspect]
     Indication: TUBERCULOUS PLEURISY
     Dosage: ORAL
     Route: 048
  2. AMLODIPINE BESYLATE [Concomitant]
  3. ATENOLOL [Concomitant]
  4. URAPIDIL (URAPIDIL) [Suspect]
  5. CANDESARTAN (CANDESARTAN) [Concomitant]

REACTIONS (2)
  - BLOOD PRESSURE INCREASED [None]
  - DRUG INTERACTION [None]
